FAERS Safety Report 7562983-0 (Version None)
Quarter: 2011Q2

REPORT INFORMATION
  Report Type: 
  Country: None (occurrence: None)
  Receive Date: 20110615
  Receipt Date: 20110608
  Transmission Date: 20111010
  Serious: Yes (Hospitalization)
  Sender: FDA-Public Use
  Company Number: FUR-11-05

PATIENT
  Age: 28 Year
  Sex: Male

DRUGS (5)
  1. ENALAPRIL MALEATE [Concomitant]
  2. SPIRONOLACTONE [Concomitant]
  3. FUROSEMIDE [Suspect]
     Indication: CARDIOMYOPATHY
     Dosage: 40MG DAY
  4. METOPROLOL SUCCINATE [Concomitant]
  5. DIGOXIN [Concomitant]

REACTIONS (3)
  - HEART RATE INCREASED [None]
  - STEVENS-JOHNSON SYNDROME [None]
  - OROPHARYNGEAL PAIN [None]
